FAERS Safety Report 5046675-8 (Version None)
Quarter: 2006Q3

REPORT INFORMATION
  Report Type: 
  Country: None (occurrence: None)
  Receive Date: 20060705
  Receipt Date: 20060705
  Transmission Date: 20061208
  Serious: Yes (Death, Life-Threatening, Hospitalization, Disabling)
  Sender: FDA-Public Use
  Company Number: None

PATIENT
  Sex: Male
  Weight: 49.8957 kg

DRUGS (2)
  1. AMNESTEEM [Suspect]
     Indication: ACNE
     Dosage: 10 MG ONCE DAILY AM ORALLY
     Route: 048
     Dates: start: 20060329
  2. AMNESTEEM [Suspect]
     Indication: ACNE
     Dosage: 40 MG ONCE DAILY PM ORALLY
     Route: 048
     Dates: start: 20060418

REACTIONS (2)
  - COMPLETED SUICIDE [None]
  - GUN SHOT WOUND [None]
